FAERS Safety Report 7263291-8 (Version None)
Quarter: 2011Q1

REPORT INFORMATION
  Report Type: 
  Country: None (occurrence: None)
  Receive Date: 20110130
  Receipt Date: 20100923
  Transmission Date: 20110831
  Serious: No
  Sender: FDA-Public Use
  Company Number: US-ABBOTT-10P-163-0673263-00

PATIENT
  Age: 43 Year
  Sex: Female

DRUGS (9)
  1. SYNTHROID [Concomitant]
     Indication: HYPOTHYROIDISM
  2. NEXIUM [Concomitant]
     Indication: GASTROOESOPHAGEAL REFLUX DISEASE
  3. PRESCRIPTION LAXATIVE [Concomitant]
     Indication: CONSTIPATION
  4. ZYRTEC [Concomitant]
     Indication: HYPERSENSITIVITY
  5. HUMIRA [Suspect]
     Indication: CROHN'S DISEASE
     Dates: start: 20100801
  6. VITAMIN D [Concomitant]
     Indication: MALNUTRITION
  7. OSCAL 500+D [Concomitant]
     Indication: PRODUCT USED FOR UNKNOWN INDICATION
  8. VITAMIN B-12 [Concomitant]
     Indication: PRODUCT USED FOR UNKNOWN INDICATION
     Dosage: SHOTS
  9. DULCOLAX [Concomitant]
     Indication: CONSTIPATION

REACTIONS (2)
  - PRURITUS [None]
  - URTICARIA [None]
